FAERS Safety Report 23150513 (Version 1)
Quarter: 2023Q4

REPORT INFORMATION
  Report Type: Spontaneous
  Country: CA (occurrence: CA)
  Receive Date: 20231106
  Receipt Date: 20231106
  Transmission Date: 20240110
  Serious: No
  Sender: FDA-Public Use
  Company Number: CA-SCALL-2023-CA-063111

PATIENT
  Sex: Male

DRUGS (1)
  1. DUTASTERIDE [Suspect]
     Active Substance: DUTASTERIDE
     Route: 065
     Dates: start: 20221001, end: 20221008

REACTIONS (3)
  - Breast enlargement [Not Recovered/Not Resolved]
  - Genital rash [Not Recovered/Not Resolved]
  - Breast tenderness [Not Recovered/Not Resolved]
